FAERS Safety Report 19297552 (Version 1)
Quarter: 2021Q2

REPORT INFORMATION
  Report Type: Spontaneous
  Country: US (occurrence: US)
  Receive Date: 20210524
  Receipt Date: 20210524
  Transmission Date: 20210717
  Serious: No
  Sender: FDA-Public Use
  Company Number: US-PFIZER INC-2021208404

PATIENT
  Age: 79 Year
  Sex: Female
  Weight: 62.14 kg

DRUGS (5)
  1. ALPRAZOLAM. [Suspect]
     Active Substance: ALPRAZOLAM
     Indication: ANXIETY
     Dosage: 2.5 MG
  2. ALPRAZOLAM. [Suspect]
     Active Substance: ALPRAZOLAM
     Dosage: 2 MG
  3. ALPRAZOLAM. [Suspect]
     Active Substance: ALPRAZOLAM
     Indication: PANIC ATTACK
     Dosage: 3 MG
  4. ALPRAZOLAM. [Suspect]
     Active Substance: ALPRAZOLAM
     Dosage: 1.5 MG
  5. ALPRAZOLAM. [Suspect]
     Active Substance: ALPRAZOLAM
     Dosage: 2 MG

REACTIONS (11)
  - Peripheral venous disease [Unknown]
  - Weight increased [Unknown]
  - Fatigue [Unknown]
  - Body height decreased [Unknown]
  - Intentional product use issue [Unknown]
  - Hypersomnia [Unknown]
  - Palpitations [Unknown]
  - Heart rate increased [Unknown]
  - Heart rate irregular [Unknown]
  - Oedema [Unknown]
  - Insomnia [Unknown]
